FAERS Safety Report 25562865 (Version 2)
Quarter: 2025Q3

REPORT INFORMATION
  Report Type: Spontaneous
  Country: EU (occurrence: EU)
  Receive Date: 20250716
  Receipt Date: 20250731
  Transmission Date: 20251020
  Serious: Yes (Life-Threatening, Other)
  Sender: SANDOZ
  Company Number: EU-MLMSERVICE-20250707-PI568058-00133-1

PATIENT
  Age: 32 Year
  Sex: Female

DRUGS (2)
  1. CYCLOPHOSPHAMIDE [Suspect]
     Active Substance: CYCLOPHOSPHAMIDE
     Indication: Triple negative breast cancer
     Dosage: 600 MG/M2, QD, FOUR CYCLES OF CYCLOPHOSPHAMIDE 600 MG /M2 D1/Q14D (KEYNOTE-522 PROTOCOL) MG/M2 D1/Q1
     Route: 042
     Dates: start: 2023, end: 2023
  2. EPIRUBICIN [Suspect]
     Active Substance: EPIRUBICIN
     Indication: Triple negative breast cancer
     Dosage: 90 MG/M2, QD, FOUR CYCLES OF EPIRUBICIN 90 MG/M2 D1 /Q14D (KEYNOTE-522 PROTOCOL) MG/M2 D1/Q14D
     Route: 042
     Dates: start: 2023, end: 2023

REACTIONS (1)
  - Febrile neutropenia [Unknown]

NARRATIVE: CASE EVENT DATE: 20230101
